FAERS Safety Report 9004310 (Version 2)
Quarter: 2013Q1

REPORT INFORMATION
  Report Type: Spontaneous
  Country: US (occurrence: US)
  Receive Date: 20130108
  Receipt Date: 20130128
  Transmission Date: 20140127
  Serious: Yes (Death, Hospitalization)
  Sender: FDA-Public Use
  Company Number: US-ASTELLAS-2013US000173

PATIENT
  Age: 83 None
  Sex: Male
  Weight: 63 kg

DRUGS (7)
  1. XTANDI [Suspect]
     Indication: PROSTATE CANCER
     Dosage: 160 MG, UID/QD
     Route: 048
     Dates: start: 20121112, end: 20121210
  2. LISINOPRIL [Suspect]
     Indication: PRODUCT USED FOR UNKNOWN INDICATION
     Dosage: 1 DF, BID
     Route: 048
     Dates: end: 20121204
  3. LISINOPRIL [Suspect]
     Dosage: 1.5 DF, UID/QD
     Route: 065
     Dates: start: 20121205
  4. METOPROLOL [Suspect]
     Indication: PRODUCT USED FOR UNKNOWN INDICATION
     Dosage: 1.5 MG, BID
     Route: 048
     Dates: start: 20121113
  5. RECLAST [Concomitant]
     Indication: OSTEOPOROSIS
     Dosage: UNK
     Route: 065
  6. PREDNISONE [Concomitant]
     Indication: PROSTATE CANCER
     Dosage: 5 MG, BID
     Route: 065
     Dates: start: 20120214
  7. ABIRATERONE [Concomitant]
     Indication: PROSTATE CANCER
     Dosage: 250 MG, UNKNOWN/D
     Route: 065
     Dates: start: 20120214

REACTIONS (3)
  - Presyncope [Unknown]
  - Hypotension [Unknown]
  - Malignant neoplasm progression [Fatal]
